FAERS Safety Report 10871987 (Version 2)
Quarter: 2015Q2

REPORT INFORMATION
  Report Type: Spontaneous
  Country: SE (occurrence: SE)
  Receive Date: 20150226
  Receipt Date: 20150403
  Transmission Date: 20150821
  Serious: Yes (Other)
  Sender: FDA-Public Use
  Company Number: SE-ACTAVIS-2015-03237

PATIENT
  Sex: Male

DRUGS (1)
  1. SALBUTAMOL ARROW [Suspect]
     Active Substance: ALBUTEROL
     Indication: ASTHMA
     Dosage: 1-2 AMPOULES TWICE DAILY
     Route: 055

REACTIONS (4)
  - Restlessness [Unknown]
  - Disturbance in attention [Unknown]
  - Abnormal behaviour [Unknown]
  - Anxiety [Unknown]
